FAERS Safety Report 5159702-4 (Version None)
Quarter: 2006Q4

REPORT INFORMATION
  Report Type: 
  Country: None (occurrence: None)
  Receive Date: 20061129
  Receipt Date: 20061117
  Transmission Date: 20070319
  Serious: Yes (Other)
  Sender: FDA-Public Use
  Company Number: BR-ROCHE-471992

PATIENT
  Age: 27 Year
  Sex: Female

DRUGS (2)
  1. ROACUTAN [Suspect]
     Route: 048
     Dates: start: 20060615, end: 20061112
  2. UNSPECIFIED DRUG [Concomitant]
     Indication: CONTRACEPTION
     Dosage: PATIENT DISCONTINUED THE THERAPY FOR 20 DAYS, BECAUSE SHE WANTED TO GET PREGNANT.

REACTIONS (3)
  - DRUG EXPOSURE DURING PREGNANCY [None]
  - NO ADVERSE EFFECT [None]
  - PREGNANCY [None]
